FAERS Safety Report 6075959-X (Version None)
Quarter: 2009Q1

REPORT INFORMATION
  Report Type: 
  Country: None (occurrence: None)
  Receive Date: 20090212
  Receipt Date: 20090203
  Transmission Date: 20090719
  Serious: Yes (Hospitalization)
  Sender: FDA-Public Use
  Company Number: US-SANOFI-SYNTHELABO-A03200900454

PATIENT
  Age: 98 Year
  Sex: Male

DRUGS (5)
  1. PRANDIN [Concomitant]
     Indication: DRUG USE FOR UNKNOWN INDICATION
     Dosage: UNK
     Route: 048
  2. NORVASC [Concomitant]
     Indication: DRUG USE FOR UNKNOWN INDICATION
     Dosage: UNK
     Route: 048
  3. UROXATRAL [Suspect]
     Indication: NOCTURIA
     Route: 048
     Dates: end: 20080101
  4. UROXATRAL [Suspect]
     Route: 048
  5. NITROGLYCERIN [Concomitant]
     Indication: DRUG USE FOR UNKNOWN INDICATION
     Dosage: UNK
     Route: 062
     Dates: end: 20080101

REACTIONS (7)
  - DIZZINESS [None]
  - FALL [None]
  - LIVER FUNCTION TEST ABNORMAL [None]
  - NAUSEA [None]
  - OEDEMA PERIPHERAL [None]
  - PULMONARY HYPERTENSION [None]
  - RENAL IMPAIRMENT [None]
